FAERS Safety Report 12474702 (Version 1)
Quarter: 2016Q2

REPORT INFORMATION
  Report Type: Spontaneous
  Country: US (occurrence: None)
  Receive Date: 20160616
  Receipt Date: 20160616
  Transmission Date: 20160815
  Serious: Yes (Other)
  Sender: FDA-Public Use
  Company Number: None

PATIENT
  Age: 54 Year
  Sex: Female
  Weight: 79.38 kg

DRUGS (1)
  1. ATORVASTATIN, 10 MG GREENSTONE L [Suspect]
     Active Substance: ATORVASTATIN
     Indication: HYPERLIPIDAEMIA
     Route: 048

REACTIONS (1)
  - Amnesia [None]

NARRATIVE: CASE EVENT DATE: 20130603
